FAERS Safety Report 16280513 (Version 1)
Quarter: 2019Q2

REPORT INFORMATION
  Report Type: Spontaneous
  Country: FR (occurrence: FR)
  Receive Date: 20190507
  Receipt Date: 20190507
  Transmission Date: 20190711
  Serious: Yes (Hospitalization, Other)
  Sender: FDA-Public Use
  Company Number: FR-ACCORD-125325

PATIENT
  Age: 64 Year
  Sex: Male

DRUGS (3)
  1. CICLOSPORIN [Suspect]
     Active Substance: CYCLOSPORINE
     Indication: IMMUNOSUPPRESSANT DRUG THERAPY
     Dosage: 80 MG B.I.D
     Dates: start: 2013
  2. PREDNISOLONE. [Suspect]
     Active Substance: PREDNISOLONE
     Indication: IMMUNOSUPPRESSANT DRUG THERAPY
     Dosage: 1 MG/ DAY
     Dates: start: 2013
  3. MYCOPHENOLIC ACID. [Suspect]
     Active Substance: MYCOPHENOLIC ACID
     Indication: IMMUNOSUPPRESSANT DRUG THERAPY
     Dosage: 1500 MG B.I.D.
     Dates: start: 2013

REACTIONS (5)
  - Leukocytosis [Unknown]
  - Tularaemia [Recovered/Resolved]
  - Neutrophilia [Unknown]
  - Respiratory distress [Unknown]
  - Pleural effusion [Recovered/Resolved]
